FAERS Safety Report 7799421-9 (Version None)
Quarter: 2011Q4

REPORT INFORMATION
  Report Type: 
  Country: None (occurrence: None)
  Receive Date: 20111006
  Receipt Date: 20110926
  Transmission Date: 20120403
  Serious: Yes (Hospitalization)
  Sender: FDA-Public Use
  Company Number: JP-SANOFI-AVENTIS-2011SA063357

PATIENT
  Age: 69 Year
  Sex: Male
  Weight: 53 kg

DRUGS (5)
  1. RILUTEK [Suspect]
     Indication: AMYOTROPHIC LATERAL SCLEROSIS
     Route: 065
     Dates: start: 20110925, end: 20110925
  2. ALL OTHER THERAPEUTIC PRODUCTS [Concomitant]
     Dates: start: 20110601, end: 20110920
  3. BACLOFEN [Concomitant]
     Dosage: 5 MG 2 TABLETS 2
     Dates: start: 20110125, end: 20110920
  4. RILUTEK [Suspect]
     Route: 065
     Dates: start: 20110924, end: 20110924
  5. RILUTEK [Suspect]
     Route: 065
     Dates: start: 20110401, end: 20110920

REACTIONS (4)
  - PRURITUS [None]
  - RASH [None]
  - PYREXIA [None]
  - HEPATIC FUNCTION ABNORMAL [None]
